FAERS Safety Report 8080906-5 (Version None)
Quarter: 2012Q1

REPORT INFORMATION
  Report Type: 
  Country: None (occurrence: None)
  Receive Date: 20120130
  Receipt Date: 20120120
  Transmission Date: 20120608
  Serious: Yes (Hospitalization, Other)
  Sender: FDA-Public Use
  Company Number: US-BAYER-2011-091647

PATIENT
  Age: 33 Year
  Sex: Female
  Weight: 77 kg

DRUGS (3)
  1. YASMIN [Suspect]
     Indication: CONTRACEPTION
     Dosage: UNK
     Route: 048
     Dates: start: 20090201, end: 20090701
  2. DROSPIRENONE AND ETHINYL ESTRADIOL [Suspect]
     Indication: CONTRACEPTION
     Dosage: UNK
     Route: 048
     Dates: start: 20090201, end: 20090701
  3. YAZ [Suspect]
     Indication: CONTRACEPTION
     Dosage: UNK
     Route: 048
     Dates: start: 20090201, end: 20090701

REACTIONS (15)
  - CHOLELITHIASIS [None]
  - CEREBROVASCULAR ACCIDENT [None]
  - GALLBLADDER DISORDER [None]
  - PAIN [None]
  - PANCREATITIS [None]
  - DEEP VEIN THROMBOSIS [None]
  - INJURY [None]
  - CAESAREAN SECTION [None]
  - CHOLECYSTITIS ACUTE [None]
  - MATERNAL EXPOSURE BEFORE PREGNANCY [None]
  - GASTROOESOPHAGEAL REFLUX DISEASE [None]
  - PULMONARY EMBOLISM [None]
  - MYOCARDIAL INFARCTION [None]
  - BILE DUCT STONE [None]
  - PREGNANCY [None]
